FAERS Safety Report 4408001-4 (Version None)
Quarter: 2004Q3

REPORT INFORMATION
  Report Type: 
  Country: None (occurrence: None)
  Receive Date: 20040721
  Receipt Date: 20040705
  Transmission Date: 20050211
  Serious: Yes (Life-Threatening, Hospitalization)
  Sender: FDA-Public Use
  Company Number: JP_040703731

PATIENT
  Age: 77 Year
  Sex: Male
  Weight: 70 kg

DRUGS (7)
  1. VANCOMYCIN [Suspect]
     Indication: PNEUMONIA STAPHYLOCOCCAL
     Dosage: 500 MG/2 DAY
     Dates: start: 20040210, end: 20040317
  2. GLYCEROL 2.6% [Concomitant]
  3. AMINOPHYLLIN [Concomitant]
  4. PANSPORIN(CEFOTIAM HYDROCHLORIDE) [Concomitant]
  5. CEFPIRAMIDE SODIUM [Concomitant]
  6. ZANTAC [Concomitant]
  7. DOPAMINE HYDROCHLORIDE [Concomitant]

REACTIONS (8)
  - ACUTE PRERENAL FAILURE [None]
  - ALANINE AMINOTRANSFERASE INCREASED [None]
  - ASPARTATE AMINOTRANSFERASE INCREASED [None]
  - BLOOD ALKALINE PHOSPHATASE INCREASED [None]
  - CARDIAC ARREST [None]
  - GAMMA-GLUTAMYLTRANSFERASE INCREASED [None]
  - HYPOXIA [None]
  - LIVER DISORDER [None]
